FAERS Safety Report 6996602-9 (Version None)
Quarter: 2010Q3

REPORT INFORMATION
  Report Type: 
  Country: None (occurrence: None)
  Receive Date: 20100918
  Receipt Date: 20090429
  Transmission Date: 20110219
  Serious: No
  Sender: FDA-Public Use
  Company Number: US-WYE-H09163509

PATIENT
  Age: 44 Year
  Sex: Female
  Weight: 49.03 kg

DRUGS (2)
  1. EFFEXOR [Suspect]
     Indication: ANXIETY
     Route: 048
     Dates: start: 20090425, end: 20090426
  2. INDERAL [Suspect]
     Dosage: 10 MG 2 TO 3 TIMES DAILY
     Dates: start: 20090418

REACTIONS (3)
  - COLD SWEAT [None]
  - DIZZINESS [None]
  - SKIN BURNING SENSATION [None]
